FAERS Safety Report 11264997 (Version 3)
Quarter: 2015Q3

REPORT INFORMATION
  Report Type: Spontaneous
  Country: JP (occurrence: JP)
  Receive Date: 20150713
  Receipt Date: 20150731
  Transmission Date: 20151125
  Serious: Yes (Other)
  Sender: FDA-Public Use
  Company Number: JP-PFIZER INC-2015227732

PATIENT
  Age: 82 Year
  Sex: Male

DRUGS (4)
  1. CELECOX [Concomitant]
     Active Substance: CELECOXIB
     Indication: BACK PAIN
     Dosage: 100 MG, 2X/DAY
     Route: 048
     Dates: start: 20150703, end: 20150703
  2. LYRICA [Suspect]
     Active Substance: PREGABALIN
     Indication: BACK PAIN
     Dosage: 75 MG, 2X/DAY
     Route: 048
     Dates: start: 20150703, end: 20150703
  3. LYRICA [Suspect]
     Active Substance: PREGABALIN
     Indication: PAIN IN EXTREMITY
  4. CELECOX [Concomitant]
     Active Substance: CELECOXIB
     Indication: PAIN IN EXTREMITY

REACTIONS (1)
  - Seizure [Recovered/Resolved]

NARRATIVE: CASE EVENT DATE: 20150704
